FAERS Safety Report 10927551 (Version 1)
Quarter: 2015Q1

REPORT INFORMATION
  Report Type: Spontaneous
  Country: US (occurrence: US)
  Receive Date: 20150318
  Receipt Date: 20150318
  Transmission Date: 20150721
  Serious: No
  Sender: FDA-Public Use
  Company Number: US-009507513-1503USA008409

PATIENT
  Sex: Female

DRUGS (2)
  1. DR. SCHOLL^S ONE STEP CORN REMOVERS [Suspect]
     Active Substance: SALICYLIC ACID
     Indication: HYPERKERATOSIS
     Dosage: UNK, UNKNOWN
     Route: 061
     Dates: start: 20150308
  2. DR. SCHOLL^S ONE STEP CORN REMOVERS [Suspect]
     Active Substance: SALICYLIC ACID
     Indication: PAIN

REACTIONS (2)
  - Pain [Recovering/Resolving]
  - Drug effect delayed [Unknown]

NARRATIVE: CASE EVENT DATE: 201503
